FAERS Safety Report 17729463 (Version 1)
Quarter: 2020Q2

REPORT INFORMATION
  Report Type: Report from Study
  Country: IE (occurrence: IE)
  Receive Date: 20200430
  Receipt Date: 20200430
  Transmission Date: 20200714
  Serious: Yes (Hospitalization)
  Sender: FDA-Public Use
  Company Number: IE-JNJFOC-20200314333

PATIENT
  Age: 43 Year
  Sex: Male

DRUGS (8)
  1. CLOZAPINE. [Concomitant]
     Active Substance: CLOZAPINE
     Route: 050
  2. DESUNIN [Concomitant]
     Active Substance: CHOLECALCIFEROL
     Dosage: 800 UNITS
     Route: 050
  3. ZOPICLONE [Concomitant]
     Active Substance: ZOPICLONE
     Route: 050
  4. EMCOR [Concomitant]
     Active Substance: BISOPROLOL
     Route: 050
  5. STELARA [Suspect]
     Active Substance: USTEKINUMAB
     Indication: CROHN^S DISEASE
     Route: 058
     Dates: start: 20200304
  6. ATORVASTATIN [Concomitant]
     Active Substance: ATORVASTATIN
     Route: 050
  7. AMISULPRIDE [Concomitant]
     Active Substance: AMISULPRIDE
     Route: 050
  8. ZOTON [Concomitant]
     Active Substance: LANSOPRAZOLE
     Route: 050

REACTIONS (3)
  - Malaise [Not Recovered/Not Resolved]
  - Influenza like illness [Not Recovered/Not Resolved]
  - Abdominal pain [Not Recovered/Not Resolved]

NARRATIVE: CASE EVENT DATE: 202003
